FAERS Safety Report 18849621 (Version 4)
Quarter: 2021Q2

REPORT INFORMATION
  Report Type: Report from Study
  Country: PL (occurrence: PL)
  Receive Date: 20210204
  Receipt Date: 20210527
  Transmission Date: 20210717
  Serious: Yes (Life-Threatening, Hospitalization)
  Sender: FDA-Public Use
  Company Number: PL-CELGENEUS-PCN-20210200475

PATIENT
  Age: 71 Year
  Sex: Female
  Weight: 58 kg

DRUGS (2)
  1. LUSPATERCEPT. [Suspect]
     Active Substance: LUSPATERCEPT
     Indication: ANAEMIA OF MALIGNANT DISEASE
     Dosage: 58 MILLIGRAM
     Route: 058
     Dates: start: 20201028
  2. LUSPATERCEPT. [Suspect]
     Active Substance: LUSPATERCEPT
     Dosage: 58 MILLIGRAM
     Route: 058
     Dates: start: 20201229, end: 20210120

REACTIONS (2)
  - Leukocytosis [Recovered/Resolved]
  - Anaemia [Recovered/Resolved]

NARRATIVE: CASE EVENT DATE: 20210120
